FAERS Safety Report 13177272 (Version 1)
Quarter: 2017Q1

REPORT INFORMATION
  Report Type: Report from Study
  Country: US (occurrence: US)
  Receive Date: 20170201
  Receipt Date: 20170201
  Transmission Date: 20170428
  Serious: No
  Sender: FDA-Public Use
  Company Number: US-EXELIXIS-CABO-16007524

PATIENT
  Sex: Female

DRUGS (28)
  1. POLYETHYLENE GLYCOL 3350. [Concomitant]
     Active Substance: POLYETHYLENE GLYCOL 3350
  2. ATIVAN [Concomitant]
     Active Substance: LORAZEPAM
  3. DIFLUCAN [Concomitant]
     Active Substance: FLUCONAZOLE
  4. SOMA [Concomitant]
     Active Substance: CARISOPRODOL
  5. REQUIP [Concomitant]
     Active Substance: ROPINIROLE HYDROCHLORIDE
  6. NORCO [Concomitant]
     Active Substance: ACETAMINOPHEN\HYDROCODONE BITARTRATE
  7. ZITHROMAX [Concomitant]
     Active Substance: AZITHROMYCIN DIHYDRATE
  8. MORPHINE SULFATE. [Concomitant]
     Active Substance: MORPHINE SULFATE
  9. MINOCYCLINE [Concomitant]
     Active Substance: MINOCYCLINE\MINOCYCLINE HYDROCHLORIDE
  10. GLIMEPIRIDE. [Concomitant]
     Active Substance: GLIMEPIRIDE
  11. FLEXERIL [Concomitant]
     Active Substance: CYCLOBENZAPRINE HYDROCHLORIDE
  12. COLACE [Concomitant]
     Active Substance: DOCUSATE SODIUM
  13. CABOMETYX [Suspect]
     Active Substance: CABOZANTINIB S-MALATE
     Indication: RENAL CANCER
     Dosage: 60 MG, QD
     Route: 048
     Dates: start: 20160823
  14. NEXIUM [Concomitant]
     Active Substance: ESOMEPRAZOLE MAGNESIUM
  15. INLYTA [Concomitant]
     Active Substance: AXITINIB
  16. RESTASIS [Concomitant]
     Active Substance: CYCLOSPORINE
  17. LANTUS SOLOSTAR [Concomitant]
     Active Substance: INSULIN GLARGINE
  18. HUMULIN NOS [Concomitant]
     Active Substance: INSULIN HUMAN
  19. ERY-TAB [Concomitant]
     Active Substance: ERYTHROMYCIN
  20. PREDNISONE. [Concomitant]
     Active Substance: PREDNISONE
  21. SYMBICORT [Concomitant]
     Active Substance: BUDESONIDE\FORMOTEROL FUMARATE DIHYDRATE
  22. SUTENT [Concomitant]
     Active Substance: SUNITINIB MALATE
  23. DEXAMETHASONE. [Concomitant]
     Active Substance: DEXAMETHASONE
  24. COMPAZINE [Concomitant]
     Active Substance: PROCHLORPERAZINE MALEATE
  25. WELLBUTRIN [Concomitant]
     Active Substance: BUPROPION HYDROCHLORIDE
  26. BACTRIM [Concomitant]
     Active Substance: SULFAMETHOXAZOLE\TRIMETHOPRIM
  27. EFFEXOR [Concomitant]
     Active Substance: VENLAFAXINE HYDROCHLORIDE
  28. KEFLEX [Concomitant]
     Active Substance: CEPHALEXIN

REACTIONS (2)
  - Memory impairment [Unknown]
  - Epistaxis [Unknown]
